FAERS Safety Report 6851786-8 (Version None)
Quarter: 2010Q3

REPORT INFORMATION
  Report Type: 
  Country: None (occurrence: None)
  Receive Date: 20100717
  Receipt Date: 20071029
  Transmission Date: 20110219
  Serious: No
  Sender: FDA-Public Use
  Company Number: US-PFIZER INC-2007092348

PATIENT
  Sex: Female
  Weight: 59 kg

DRUGS (4)
  1. CHANTIX [Suspect]
     Indication: SMOKING CESSATION THERAPY
     Dates: start: 20070101
  2. VITAMINS [Concomitant]
  3. FLEXERIL [Concomitant]
  4. WELLBUTRIN [Concomitant]
     Indication: SMOKING CESSATION THERAPY

REACTIONS (8)
  - CONSTIPATION [None]
  - FATIGUE [None]
  - FLATULENCE [None]
  - HOT FLUSH [None]
  - INCORRECT DRUG ADMINISTRATION DURATION [None]
  - INITIAL INSOMNIA [None]
  - MIDDLE INSOMNIA [None]
  - NAUSEA [None]
